APPROVED DRUG PRODUCT: CHLORPROPAMIDE
Active Ingredient: CHLORPROPAMIDE
Strength: 250MG
Dosage Form/Route: TABLET;ORAL
Application: A088922 | Product #001
Applicant: ANI PHARMACEUTICALS INC
Approved: Apr 12, 1985 | RLD: No | RS: No | Type: DISCN